FAERS Safety Report 18367075 (Version 1)
Quarter: 2020Q4

REPORT INFORMATION
  Report Type: Spontaneous
  Country: US (occurrence: US)
  Receive Date: 20201009
  Receipt Date: 20201009
  Transmission Date: 20210114
  Serious: Yes (Other)
  Sender: FDA-Public Use
  Company Number: US-PFIZER INC-2020388066

PATIENT
  Sex: Male

DRUGS (1)
  1. NORVASC [Suspect]
     Active Substance: AMLODIPINE BESYLATE
     Dosage: UNK, 2X/DAY (SAME TIME EVERY NIGHT AND IN THE EVENING)

REACTIONS (5)
  - Fatigue [Unknown]
  - Sleep apnoea syndrome [Unknown]
  - Feeling abnormal [Unknown]
  - Blood pressure increased [Unknown]
  - Asthenia [Unknown]
